FAERS Safety Report 21706579 (Version 1)
Quarter: 2022Q4

REPORT INFORMATION
  Report Type: Spontaneous
  Country: CN (occurrence: CN)
  Receive Date: 20221209
  Receipt Date: 20221209
  Transmission Date: 20230112
  Serious: Yes (Other)
  Sender: FDA-Public Use
  Company Number: CN-009507513-2212CHN002275

PATIENT
  Age: 74 Year
  Sex: Male
  Weight: 58.8 kg

DRUGS (2)
  1. CILASTATIN SODIUM\IMIPENEM [Suspect]
     Active Substance: CILASTATIN SODIUM\IMIPENEM
     Indication: Liver abscess
     Dosage: 0.5 G, Q8H, IV DRIP
     Route: 041
     Dates: start: 20221111, end: 20221116
  2. SODIUM CHLORIDE [Concomitant]
     Active Substance: SODIUM CHLORIDE
     Indication: Medication dilution
     Dosage: 100 ML, Q8H, IV DRIP
     Route: 041
     Dates: start: 20221111, end: 20221116

REACTIONS (3)
  - Delirium [Recovering/Resolving]
  - Mental disorder [Recovering/Resolving]
  - Dysphoria [Recovering/Resolving]

NARRATIVE: CASE EVENT DATE: 20221115
